FAERS Safety Report 15671713 (Version 9)
Quarter: 2020Q1

REPORT INFORMATION
  Report Type: Report from Study
  Country: US (occurrence: US)
  Receive Date: 20181129
  Receipt Date: 20200115
  Transmission Date: 20200409
  Serious: Yes (Other)
  Sender: FDA-Public Use
  Company Number: US-TESARO-US-2018TSO04061

PATIENT
  Age: 64 Year
  Sex: Female
  Weight: 113 kg

DRUGS (4)
  1. NIRAPARIB CAPSULE [Suspect]
     Active Substance: NIRAPARIB
     Dosage: 200 MG,QPM WITH FOOD
     Route: 048
  2. NIRAPARIB CAPSULE [Suspect]
     Active Substance: NIRAPARIB
     Dosage: 200 MG, DAILY
     Route: 048
  3. NIRAPARIB CAPSULE [Suspect]
     Active Substance: NIRAPARIB
     Indication: MALIGNANT PERITONEAL NEOPLASM
     Dosage: 200 MG, QD
     Route: 048
     Dates: start: 20180726
  4. NIRAPARIB CAPSULE [Suspect]
     Active Substance: NIRAPARIB
     Dosage: 200 MG DAILY
     Route: 048

REACTIONS (17)
  - Thinking abnormal [Unknown]
  - Constipation [Unknown]
  - Blood glucose increased [Unknown]
  - Contusion [Not Recovered/Not Resolved]
  - Fatigue [Unknown]
  - Eye infection bacterial [Unknown]
  - Intentional underdose [Unknown]
  - Neuropathy peripheral [Not Recovered/Not Resolved]
  - Rash erythematous [Unknown]
  - Peripheral swelling [Unknown]
  - Nausea [Unknown]
  - Oedema peripheral [Unknown]
  - Genital pain [Unknown]
  - Nasal mucosal discolouration [Unknown]
  - Frequent bowel movements [Unknown]
  - Proctalgia [Unknown]
  - Joint swelling [Unknown]

NARRATIVE: CASE EVENT DATE: 20180726
